FAERS Safety Report 23389492 (Version 1)
Quarter: 2024Q1

REPORT INFORMATION
  Report Type: Report from Study
  Country: US (occurrence: US)
  Receive Date: 20240110
  Receipt Date: 20240110
  Transmission Date: 20240409
  Serious: Yes (Other)
  Sender: FDA-Public Use
  Company Number: US-JNJFOC-20231057330

PATIENT
  Age: 67 Year
  Sex: Female
  Weight: 52.3 kg

DRUGS (16)
  1. SELEXIPAG [Suspect]
     Active Substance: SELEXIPAG
     Indication: Pulmonary arterial hypertension
     Route: 048
     Dates: start: 20231021, end: 20231022
  2. VITAMIN C [Concomitant]
     Active Substance: ASCORBIC ACID
     Dosage: TAKE 100 MG BY MOUTH ONCE DAILY. PER G TUBE
     Route: 048
  3. ASPIRIN [Concomitant]
     Active Substance: ASPIRIN
     Dosage: CHEW 81 MG BY MOUTH ONCE DAILY WITH A MEAL
     Route: 048
  4. COREG [Concomitant]
     Active Substance: CARVEDILOL
     Dosage: TAKE ONE TABLET BY MOUTH TWICE A DAY
     Route: 048
  5. CHOLECALCIFEROL [Concomitant]
     Active Substance: CHOLECALCIFEROL
     Dosage: 125 MCG/ML(5,000 UNIT/ML)  - 5,000 UNITS BY G-TUBE ROUTE ONCE DAILY.
  6. COLCHICINE [Concomitant]
     Active Substance: COLCHICINE
     Dosage: TAKE 0.6 MG BY MOUTH ONCE DAILY
     Route: 048
  7. DIGESTIVE ENZYMES [BETAINE HYDROCHLORIDE;BROMELAINS;CELLULASE;PANCREAT [Concomitant]
     Dosage: TAKE 1 CAPSULE BY MOUTH THREE TIMES DAILY WITH MEALS. OKAY TO TAKE PER GTUBE.
  8. LASIX [Concomitant]
     Active Substance: FUROSEMIDE
     Dosage: TAKE 1 TABLET (20 MG) BY MOUTH EVERY MORNING
     Route: 048
  9. PROBIOTICS NOS [Concomitant]
     Active Substance: PROBIOTICS NOS
     Dosage: 15 BILLION CELL-TAKE 1 CAPSULE BY MOUTH ONCE DAILY. OKAY TO TAKE PER G-TUBE
  10. PRINIVIL [Concomitant]
     Active Substance: LISINOPRIL
     Dosage: ADMINISTER 1 TABLET (2.5 MG) VIA G-TUBE ONCE DAILY
  11. ZESTRIL [Concomitant]
     Active Substance: LISINOPRIL
     Dosage: ADMINISTER 1 TABLET (2.5 MG) VIA G-TUBE ONCE DAILY
  12. BACTROBAN [Concomitant]
     Active Substance: MUPIROCIN CALCIUM
     Dosage: APPLY TOPICALLY TO AFFECTED AREA(S) 2 TIMES DAILY IF NEEDED (SORES).
  13. OXYGEN [Concomitant]
     Active Substance: OXYGEN
     Dosage: OXYGEN FOR HOME USE. LITERS PER MINUTE: 2 PER NASAL CANNULA. FREQUENCY OF USE: WITH ACTIVITY;. LENGT
  14. POVIDONE-IODINE [Concomitant]
     Active Substance: POVIDONE-IODINE
     Dosage: BY MISCELLANEOUS ROUTE INDICATIONS: 8 DROPS PER DAY.
  15. TADALAFIL [Concomitant]
     Active Substance: TADALAFIL
     Dosage: TAKE 20 MG BY MOUTH ONCE DAILY.
  16. ZINC ACETATE [Concomitant]
     Active Substance: ZINC ACETATE
     Dosage: 25 MG BY G-TUBE ROUTE ONCE DAILY.
     Route: 048

REACTIONS (10)
  - Hypoxia [Recovered/Resolved]
  - Diarrhoea [Recovered/Resolved]
  - Headache [Recovered/Resolved]
  - Insomnia [Recovered/Resolved]
  - Oxygen saturation decreased [Unknown]
  - Productive cough [Recovered/Resolved]
  - Dyspnoea [Recovered/Resolved]
  - Palpitations [Recovered/Resolved]
  - Therapy cessation [Unknown]
  - Drug intolerance [Unknown]

NARRATIVE: CASE EVENT DATE: 20231021
